FAERS Safety Report 4462600-2 (Version None)
Quarter: 2004Q3

REPORT INFORMATION
  Report Type: 
  Country: None (occurrence: None)
  Receive Date: 20040928
  Receipt Date: 20040915
  Transmission Date: 20050211
  Serious: Yes (Hospitalization)
  Sender: FDA-Public Use
  Company Number: 2004233696ZA

PATIENT
  Age: 59 Year
  Sex: Male
  Weight: 80 kg

DRUGS (2)
  1. BEXTRA [Suspect]
     Indication: ARTHRALGIA
     Dosage: 40 MG, QD, ORAL
     Route: 048
     Dates: start: 20040801, end: 20040804
  2. ROFECOXIB [Suspect]
     Indication: ARTHRALGIA
     Dosage: 25 MG, QD, ORAL
     Route: 048
     Dates: start: 20040807, end: 20040811

REACTIONS (4)
  - ACUTE CORONARY SYNDROME [None]
  - ARTERIOSPASM CORONARY [None]
  - ELECTROCARDIOGRAM ST SEGMENT ELEVATION [None]
  - HYPERHOMOCYSTEINAEMIA [None]
